FAERS Safety Report 13144293 (Version 2)
Quarter: 2017Q1

REPORT INFORMATION
  Report Type: Spontaneous
  Country: US (occurrence: US)
  Receive Date: 20170124
  Receipt Date: 20170127
  Transmission Date: 20170428
  Serious: Yes (Hospitalization, Other)
  Sender: FDA-Public Use
  Company Number: US-ROCHE-1882242

PATIENT
  Age: 69 Year
  Sex: Female
  Weight: 51.3 kg

DRUGS (5)
  1. KLONOPIN [Suspect]
     Active Substance: CLONAZEPAM
     Dosage: ONGOING;NO
     Route: 048
     Dates: start: 20161104
  2. LYRICA [Suspect]
     Active Substance: PREGABALIN
     Indication: FIBROMYALGIA
     Dosage: ONGOING;NO
     Route: 065
     Dates: start: 201609, end: 201609
  3. CYMBALTA [Concomitant]
     Active Substance: DULOXETINE HYDROCHLORIDE
     Indication: DEPRESSION
     Route: 065
  4. KLONOPIN [Suspect]
     Active Substance: CLONAZEPAM
     Indication: ANXIETY
     Dosage: ONGOING;YES
     Route: 048
     Dates: end: 20161104
  5. AMLODIPINE [Concomitant]
     Active Substance: AMLODIPINE BESYLATE
     Indication: HYPERTENSION
     Route: 065

REACTIONS (11)
  - Foot fracture [Unknown]
  - Urinary incontinence [Recovering/Resolving]
  - Loss of consciousness [Unknown]
  - Mental disorder [Recovered/Resolved]
  - Memory impairment [Not Recovered/Not Resolved]
  - Dysarthria [Recovered/Resolved]
  - Fall [Unknown]
  - Pain in extremity [Not Recovered/Not Resolved]
  - Head injury [Recovered/Resolved]
  - Rhabdomyolysis [Not Recovered/Not Resolved]
  - Drug ineffective [Unknown]

NARRATIVE: CASE EVENT DATE: 201609
